FAERS Safety Report 12992758 (Version 2)
Quarter: 2016Q4

REPORT INFORMATION
  Report Type: Report from Study
  Country: US (occurrence: US)
  Receive Date: 20161202
  Receipt Date: 20161212
  Transmission Date: 20170207
  Serious: Yes (Hospitalization)
  Sender: FDA-Public Use
  Company Number: US-ACTELION-A-NJ2016-146140

PATIENT
  Age: 9 Month
  Sex: Female

DRUGS (7)
  1. SILDENAFIL. [Concomitant]
     Active Substance: SILDENAFIL
     Dosage: 6 MG, Q8HRS
     Dates: start: 20161021
  2. TRACLEER [Suspect]
     Active Substance: BOSENTAN
     Indication: PULMONARY HYPERTENSION
     Dosage: 62.5 MG, BID
     Route: 048
     Dates: start: 20161031
  3. TRACLEER [Suspect]
     Active Substance: BOSENTAN
     Dosage: 6 MG, Q12HRS
     Route: 048
     Dates: start: 20161102
  4. FUROSEMIDE. [Concomitant]
     Active Substance: FUROSEMIDE
     Dosage: 5 MG, Q12HRS
     Dates: start: 20161021
  5. SEPTRA [Concomitant]
     Active Substance: SULFAMETHOXAZOLE\TRIMETHOPRIM
     Dosage: 36 MG, Q12HRS
     Dates: start: 20161021
  6. CLONIDINE. [Concomitant]
     Active Substance: CLONIDINE
     Dosage: 0.009 MG, Q8HRS
     Dates: start: 20161021
  7. MONTELUKAST [Concomitant]
     Active Substance: MONTELUKAST SODIUM
     Dosage: 10 MG, QD
     Dates: start: 20161021

REACTIONS (2)
  - Cough [Recovered/Resolved]
  - Respiratory syncytial virus bronchiolitis [Recovered/Resolved]

NARRATIVE: CASE EVENT DATE: 20161111
